FAERS Safety Report 18625488 (Version 2)
Quarter: 2020Q4

REPORT INFORMATION
  Report Type: Report from Study
  Country: US (occurrence: US)
  Receive Date: 20201217
  Receipt Date: 20201222
  Transmission Date: 20210114
  Serious: No
  Sender: FDA-Public Use
  Company Number: NVSC2020US332695

PATIENT
  Sex: Female

DRUGS (1)
  1. ILARIS [Suspect]
     Active Substance: CANAKINUMAB
     Indication: JUVENILE IDIOPATHIC ARTHRITIS
     Dosage: 300 MG (INJECT 1 ML TWICE, FOR TOTAL DOSE OF 2 ML), Q4W
     Route: 058

REACTIONS (2)
  - Pain [Unknown]
  - Product dose omission issue [Unknown]
